FAERS Safety Report 9565862 (Version 1)
Quarter: 2013Q3

REPORT INFORMATION
  Report Type: Spontaneous
  Country: ZA (occurrence: ZA)
  Receive Date: 20130930
  Receipt Date: 20130930
  Transmission Date: 20140515
  Serious: Yes (Other)
  Sender: FDA-Public Use
  Company Number: ZA-BAXTER-2013BAX037039

PATIENT
  Age: 34 Year
  Sex: Female

DRUGS (11)
  1. EXTRANEAL [Suspect]
     Indication: PERITONEAL DIALYSIS
     Route: 033
     Dates: start: 20130817, end: 20130823
  2. EXTRANEAL [Suspect]
     Indication: DIABETES MELLITUS
     Route: 033
  3. LIPOGEN [Concomitant]
     Indication: BLOOD CHOLESTEROL
     Route: 048
     Dates: start: 20121120
  4. NOVORAPID [Concomitant]
     Indication: DIABETES MELLITUS
     Route: 058
     Dates: start: 20121120
  5. LEVEMIR [Concomitant]
     Indication: DIABETES MELLITUS
     Route: 058
     Dates: start: 20121120
  6. CALTRATE [Concomitant]
     Indication: PRODUCT USED FOR UNKNOWN INDICATION
     Route: 048
     Dates: start: 20130522
  7. ISOPTIN [Concomitant]
     Indication: HYPERTENSION
     Route: 048
     Dates: start: 20130522
  8. LASIX [Concomitant]
     Indication: DIURETIC THERAPY
     Route: 048
     Dates: start: 20121120
  9. PANTOLOC [Concomitant]
     Indication: GASTRIC ULCER
     Route: 048
  10. AMLOC [Concomitant]
     Indication: HYPERTENSION
     Route: 048
     Dates: start: 20130522
  11. FERRIMED [Concomitant]
     Indication: MINERAL SUPPLEMENTATION
     Route: 048
     Dates: start: 20121120

REACTIONS (1)
  - Adverse drug reaction [Recovered/Resolved]
